FAERS Safety Report 17643473 (Version 1)
Quarter: 2020Q2

REPORT INFORMATION
  Report Type: Spontaneous
  Country: US (occurrence: US)
  Receive Date: 20200407
  Receipt Date: 20200407
  Transmission Date: 20200713
  Serious: No
  Sender: FDA-Public Use
  Company Number: None

PATIENT
  Age: 61 Year
  Sex: Female

DRUGS (1)
  1. CEFUROXIME. [Suspect]
     Active Substance: CEFUROXIME
     Indication: INFECTION
     Route: 048
     Dates: start: 20200324, end: 20200330

REACTIONS (1)
  - Taste disorder [None]

NARRATIVE: CASE EVENT DATE: 20200324
